FAERS Safety Report 4914686-6 (Version None)
Quarter: 2006Q1

REPORT INFORMATION
  Report Type: 
  Country: None (occurrence: None)
  Receive Date: 20060216
  Receipt Date: 20050930
  Transmission Date: 20060701
  Serious: Yes (Hospitalization, Other)
  Sender: FDA-Public Use
  Company Number: US-MERCK-0510USA00735

PATIENT
  Age: 71 Year
  Sex: Male
  Weight: 68 kg

DRUGS (7)
  1. VIOXX [Suspect]
     Indication: SPONDYLITIS
     Route: 048
     Dates: start: 20000218, end: 20010301
  2. FLOMAX (MORNIFLUMATE) [Concomitant]
     Route: 065
  3. GOLYTELY [Concomitant]
     Route: 065
  4. HYDROCHLOROTHIAZIDE [Concomitant]
     Route: 065
  5. LORTAB [Concomitant]
     Route: 065
  6. VICODIN [Concomitant]
     Route: 065
  7. AMBIEN [Concomitant]
     Route: 065

REACTIONS (11)
  - ABDOMINAL PAIN [None]
  - ANGER [None]
  - CAROTID ARTERY STENOSIS [None]
  - CEREBRAL DISORDER [None]
  - CEREBROVASCULAR ACCIDENT [None]
  - CONDITION AGGRAVATED [None]
  - DEPRESSION [None]
  - DIZZINESS [None]
  - HEADACHE [None]
  - ISCHAEMIC STROKE [None]
  - TRANSIENT ISCHAEMIC ATTACK [None]
